FAERS Safety Report 22608419 (Version 1)
Quarter: 2023Q2

REPORT INFORMATION
  Report Type: Spontaneous
  Country: GB (occurrence: GB)
  Receive Date: 20230616
  Receipt Date: 20230616
  Transmission Date: 20230721
  Serious: Yes (Other)
  Sender: FDA-Public Use
  Company Number: GB-LUPIN HEALTHCARE (UK) LIMITED-2023-04496

PATIENT
  Age: 66 Year
  Sex: Female

DRUGS (3)
  1. SERTRALINE [Suspect]
     Active Substance: SERTRALINE HYDROCHLORIDE
     Indication: Erythromelalgia
     Dosage: UNK
     Route: 065
     Dates: end: 2022
  2. MEXILETINE [Suspect]
     Active Substance: MEXILETINE
     Indication: Erythromelalgia
     Dosage: UNK
     Route: 065
  3. LIDOCAINE [Suspect]
     Active Substance: LIDOCAINE
     Indication: Erythromelalgia
     Dosage: UNK
     Route: 042

REACTIONS (5)
  - Drug intolerance [Recovered/Resolved]
  - Erythromelalgia [Unknown]
  - Condition aggravated [Unknown]
  - Drug ineffective for unapproved indication [Unknown]
  - Off label use [Unknown]
